FAERS Safety Report 7889172-4 (Version None)
Quarter: 2011Q4

REPORT INFORMATION
  Report Type: 
  Country: None (occurrence: None)
  Receive Date: 20111103
  Receipt Date: 20111031
  Transmission Date: 20120403
  Serious: Yes (Other)
  Sender: FDA-Public Use
  Company Number: JP-PFIZER INC-2011265175

PATIENT
  Sex: Male

DRUGS (2)
  1. DIFLORASONE DIACETATE [Suspect]
     Indication: ATOPY
     Route: 003
  2. IBUPROFEN [Suspect]
     Indication: ATOPY

REACTIONS (1)
  - CATARACT [None]
